FAERS Safety Report 26055611 (Version 2)
Quarter: 2025Q4

REPORT INFORMATION
  Report Type: Spontaneous
  Country: JP (occurrence: JP)
  Receive Date: 20251117
  Receipt Date: 20251203
  Transmission Date: 20260118
  Serious: Yes (Death, Other)
  Sender: UCB
  Company Number: JP-UCBJ-CD202515135UCBPHAPROD

PATIENT
  Age: 72 Year
  Sex: Male

DRUGS (2)
  1. LEVETIRACETAM [Suspect]
     Active Substance: LEVETIRACETAM
     Indication: Product used for unknown indication
     Dosage: UNK
  2. EDARAVONE [Concomitant]
     Active Substance: EDARAVONE
     Indication: Product used for unknown indication

REACTIONS (1)
  - Pneumonia aspiration [Fatal]
